FAERS Safety Report 8148586-8 (Version None)
Quarter: 2012Q1

REPORT INFORMATION
  Report Type: 
  Country: None (occurrence: None)
  Receive Date: 20120218
  Receipt Date: 20110620
  Transmission Date: 20120608
  Serious: No
  Sender: FDA-Public Use
  Company Number: US-ALLERGAN-1108331US

PATIENT
  Age: 40 Year
  Sex: Female

DRUGS (2)
  1. FAT BURNERS [Concomitant]
     Dosage: UNK
     Dates: start: 20110601
  2. BOTOX COSMETIC [Suspect]
     Indication: SKIN WRINKLING
     Dosage: 23 UNITS, SINGLE
     Dates: start: 20110610, end: 20110610

REACTIONS (2)
  - HEAT RASH [None]
  - HOT FLUSH [None]
